FAERS Safety Report 7804346-6 (Version None)
Quarter: 2011Q4

REPORT INFORMATION
  Report Type: 
  Country: None (occurrence: None)
  Receive Date: 20111010
  Receipt Date: 20111006
  Transmission Date: 20120403
  Serious: Yes (Hospitalization, Other)
  Sender: FDA-Public Use
  Company Number: DE-BRISTOL-MYERS SQUIBB COMPANY-16054157

PATIENT
  Sex: Female
  Weight: 65 kg

DRUGS (4)
  1. SEROQUEL [Concomitant]
     Indication: PSYCHOTIC DISORDER
     Route: 048
  2. ABILIFY [Suspect]
     Indication: PSYCHOTIC DISORDER
     Route: 048
  3. CLONAZEPAM [Concomitant]
     Indication: ANXIETY
     Route: 048
  4. XIMOVAN [Concomitant]
     Indication: INSOMNIA
     Route: 048

REACTIONS (2)
  - PARANOIA [None]
  - VENTRICULAR EXTRASYSTOLES [None]
